FAERS Safety Report 5943729-6 (Version None)
Quarter: 2008Q4

REPORT INFORMATION
  Report Type: 
  Country: None (occurrence: None)
  Receive Date: 20081106
  Receipt Date: 20080918
  Transmission Date: 20090506
  Serious: No
  Sender: FDA-Public Use
  Company Number: US-BAYER-200832088NA

PATIENT

DRUGS (1)
  1. MAGNEVIST [Suspect]
     Indication: DRUG USE FOR UNKNOWN INDICATION
     Dates: start: 20080801, end: 20080801

REACTIONS (2)
  - NAUSEA [None]
  - VOMITING [None]
